FAERS Safety Report 22022505 (Version 1)
Quarter: 2023Q1

REPORT INFORMATION
  Report Type: Spontaneous
  Country: US (occurrence: None)
  Receive Date: 20230220
  Receipt Date: 20230220
  Transmission Date: 20230417
  Serious: Yes (Other)
  Sender: FDA-Public Use
  Company Number: None

PATIENT
  Age: 50 Year
  Sex: Male
  Weight: 114.75 kg

DRUGS (4)
  1. DIETARY SUPPLEMENT\HERBALS [Suspect]
     Active Substance: DIETARY SUPPLEMENT\HERBALS
     Indication: Drug therapy enhancement
     Dosage: FREQUENCY : AS NEEDED;?
     Route: 048
     Dates: start: 20230201, end: 20230201
  2. SILDENAFIL [Suspect]
     Active Substance: SILDENAFIL
  3. ACCUPRIL [Concomitant]
     Active Substance: QUINAPRIL HYDROCHLORIDE
  4. MINERALS\VITAMINS [Concomitant]
     Active Substance: MINERALS\VITAMINS

REACTIONS (3)
  - Palpitations [None]
  - Headache [None]
  - Product communication issue [None]

NARRATIVE: CASE EVENT DATE: 20230201
